FAERS Safety Report 10035561 (Version 2)
Quarter: 2014Q1

REPORT INFORMATION
  Report Type: Spontaneous
  Country: US (occurrence: US)
  Receive Date: 20140325
  Receipt Date: 20140331
  Transmission Date: 20141002
  Serious: No
  Sender: FDA-Public Use
  Company Number: US-PFIZER INC-2014081272

PATIENT
  Age: 68 Year
  Sex: Female

DRUGS (13)
  1. LYRICA [Suspect]
     Dosage: UNK
  2. GABAPENTIN [Suspect]
     Dosage: UNK
  3. VERAPAMIL HCL [Suspect]
     Dosage: UNK
  4. ENBREL [Suspect]
     Dosage: UNK
  5. TRAMADOL HCL [Suspect]
     Dosage: UNK
  6. OXYCODONE HYDROCHLORIDE [Suspect]
     Dosage: UNK
  7. CITALOPRAM HBR [Suspect]
     Dosage: UNK
  8. ACETAMINOPHEN [Suspect]
     Dosage: UNK
  9. CEPHALEXIN [Suspect]
     Dosage: UNK
  10. CYMBALTA [Suspect]
     Dosage: UNK
  11. FOSAMAX [Suspect]
     Dosage: UNK
  12. PLAQUENIL [Suspect]
     Dosage: UNK
  13. WELLBUTRIN [Suspect]
     Dosage: UNK

REACTIONS (1)
  - Drug hypersensitivity [Unknown]
